FAERS Safety Report 24841958 (Version 1)
Quarter: 2025Q1

REPORT INFORMATION
  Report Type: Spontaneous
  Country: CA (occurrence: CA)
  Receive Date: 20250114
  Receipt Date: 20250114
  Transmission Date: 20250409
  Serious: Yes (Life-Threatening, Disabling, Other)
  Sender: TEVA
  Company Number: CA-TEVA-VS-3286239

PATIENT
  Age: 25 Year
  Sex: Female
  Weight: 83.915 kg

DRUGS (1)
  1. CIPROFLOXACIN [Suspect]
     Active Substance: CIPROFLOXACIN
     Indication: Urinary tract infection
     Route: 048

REACTIONS (6)
  - Myoclonus [Not Recovered/Not Resolved]
  - Pain [Not Recovered/Not Resolved]
  - Fatigue [Not Recovered/Not Resolved]
  - Dystonia [Not Recovered/Not Resolved]
  - Muscle rigidity [Not Recovered/Not Resolved]
  - Dyskinesia [Not Recovered/Not Resolved]
